FAERS Safety Report 10885251 (Version 1)
Quarter: 2015Q1

REPORT INFORMATION
  Report Type: Spontaneous
  Country: US (occurrence: US)
  Receive Date: 20150304
  Receipt Date: 20150304
  Transmission Date: 20150721
  Serious: Yes (Other)
  Sender: FDA-Public Use
  Company Number: PHHY2015US022885

PATIENT
  Age: 66 Year
  Sex: Male

DRUGS (2)
  1. CABERGOLINE. [Suspect]
     Active Substance: CABERGOLINE
     Indication: PITUITARY TUMOUR BENIGN
     Route: 065
  2. OCTREOTIDE [Suspect]
     Active Substance: OCTREOTIDE
     Indication: PITUITARY TUMOUR BENIGN
     Route: 065

REACTIONS (5)
  - Blood corticotrophin increased [Recovering/Resolving]
  - Therapeutic response decreased [Unknown]
  - Drug resistance [Unknown]
  - Pituitary haemorrhage [Unknown]
  - Neoplasm progression [Unknown]
